FAERS Safety Report 6332534-7 (Version None)
Quarter: 2009Q3

REPORT INFORMATION
  Report Type: 
  Country: None (occurrence: None)
  Receive Date: 20090826
  Receipt Date: 20090811
  Transmission Date: 20100115
  Serious: Yes (Hospitalization)
  Sender: FDA-Public Use
  Company Number: 238234K09USA

PATIENT
  Age: 39 Year
  Sex: Female
  Weight: 76 kg

DRUGS (7)
  1. REBIF [Suspect]
     Indication: MULTIPLE SCLEROSIS
     Dates: end: 20090101
  2. BACLOFEN [Concomitant]
  3. MIRAPEX [Concomitant]
  4. DANTROLEN (DANTROLENE) [Concomitant]
  5. PROVIGIL [Concomitant]
  6. PROZAC [Concomitant]
  7. OXYBUTYNIN CHLORIDE EXTENDED RELEASE [Concomitant]

REACTIONS (6)
  - CONDITION AGGRAVATED [None]
  - MALAISE [None]
  - MULTIPLE SCLEROSIS [None]
  - PARAPLEGIA [None]
  - SOMNOLENCE [None]
  - WEIGHT DECREASED [None]
